FAERS Safety Report 6396178-3 (Version None)
Quarter: 2009Q4

REPORT INFORMATION
  Report Type: 
  Country: None (occurrence: None)
  Receive Date: 20091010
  Receipt Date: 20091001
  Transmission Date: 20100525
  Serious: Yes (Other)
  Sender: FDA-Public Use
  Company Number: US-JNJCH-2009026306

PATIENT
  Age: 11 Month
  Sex: Female
  Weight: 11.3 kg

DRUGS (1)
  1. DESITIN RAPID RELIEF CREAMY [Suspect]
     Indication: DERMATITIS DIAPER
     Dosage: TEXT:^ENOUGH TO COVER BUTTOCK^ 5X A DAY
     Route: 061
     Dates: start: 20090924, end: 20091001

REACTIONS (1)
  - APPLICATION SITE BLEEDING [None]
